FAERS Safety Report 18078731 (Version 1)
Quarter: 2020Q3

REPORT INFORMATION
  Report Type: Spontaneous
  Country: US (occurrence: US)
  Receive Date: 20200727
  Receipt Date: 20200727
  Transmission Date: 20201103
  Serious: Yes (Other)
  Sender: FDA-Public Use
  Company Number: US-SUN PHARMACEUTICAL INDUSTRIES LTD-2020R1-254956

PATIENT

DRUGS (3)
  1. ELIQUIS [Interacting]
     Active Substance: APIXABAN
     Indication: PRODUCT USED FOR UNKNOWN INDICATION
     Dosage: 5 MILLIGRAM, BID
     Route: 065
  2. TRAMADOL. [Interacting]
     Active Substance: TRAMADOL
     Indication: PAIN
     Dosage: 1 TABLET, DAILY(IN EVENING)(50 MG)
     Route: 048
  3. METOPROLOL. [Suspect]
     Active Substance: METOPROLOL
     Indication: PRODUCT USED FOR UNKNOWN INDICATION
     Dosage: 1 UNK(ONE PILL A DAY)(25 MG)
     Route: 065

REACTIONS (3)
  - Drug interaction [Unknown]
  - Asphyxia [Unknown]
  - Palpitations [Unknown]
